FAERS Safety Report 8583693-7 (Version None)
Quarter: 2012Q3

REPORT INFORMATION
  Report Type: 
  Country: None (occurrence: None)
  Receive Date: 20120809
  Receipt Date: 20120709
  Transmission Date: 20120928
  Serious: Yes (Hospitalization, Other)
  Sender: FDA-Public Use
  Company Number: US-009507513-2012SP022824

PATIENT

DRUGS (2)
  1. ONE-A-DAY ESSENTIAL VITAMINS [Concomitant]
     Indication: ROUTINE HEALTH MAINTENANCE
  2. NUVARING [Suspect]
     Indication: CONTRACEPTION
     Dosage: UNK
     Dates: start: 20090701, end: 20100401

REACTIONS (7)
  - PULMONARY EMBOLISM [None]
  - CERVICAL DYSPLASIA [None]
  - DYSPNOEA [None]
  - NAUSEA [None]
  - TRICHOMONIASIS [None]
  - SYNCOPE [None]
  - FATIGUE [None]
